FAERS Safety Report 13328322 (Version 1)
Quarter: 2017Q1

REPORT INFORMATION
  Report Type: Report from Study
  Country: US (occurrence: US)
  Receive Date: 20170313
  Receipt Date: 20170313
  Transmission Date: 20170428
  Serious: No
  Sender: FDA-Public Use
  Company Number: US-AMGEN-USASL2017036306

PATIENT
  Sex: Female

DRUGS (1)
  1. ENBREL [Suspect]
     Active Substance: ETANERCEPT
     Indication: PSORIASIS
     Dosage: 50 MG, 2 TIMES/WK
     Route: 065

REACTIONS (7)
  - Erythema [Unknown]
  - Headache [Unknown]
  - Hypertension [Unknown]
  - Swelling face [Unknown]
  - Rash [Unknown]
  - Nausea [Unknown]
  - Injection site erythema [Unknown]

NARRATIVE: CASE EVENT DATE: 201602
